FAERS Safety Report 23390554 (Version 2)
Quarter: 2024Q1

REPORT INFORMATION
  Report Type: Report from Study
  Country: JP (occurrence: JP)
  Receive Date: 20240111
  Receipt Date: 20240220
  Transmission Date: 20240410
  Serious: No
  Sender: FDA-Public Use
  Company Number: JP-ABBVIE-19K-087-3182638-00

PATIENT
  Age: 67 Year
  Sex: Female
  Weight: 57 kg

DRUGS (14)
  1. CARBIDOPA\LEVODOPA [Suspect]
     Active Substance: CARBIDOPA\LEVODOPA
     Indication: Parkinson^s disease
     Dosage: MD: 8 ML, CD: 3.2 ML/HR ?, 16 HRS, ED: 1.2 ML/UNIT ? 4
     Route: 050
     Dates: start: 20200512, end: 20201123
  2. CARBIDOPA\LEVODOPA [Suspect]
     Active Substance: CARBIDOPA\LEVODOPA
     Dosage: MD: 8 ML, CD: 3.8 ML/HR ? 16 HRS, ED: 1.2 ML/UNIT ? 4
     Route: 050
     Dates: start: 20191129, end: 20200511
  3. CARBIDOPA\LEVODOPA [Suspect]
     Active Substance: CARBIDOPA\LEVODOPA
     Dosage: MD: 8 ML, CD: 3.2 ML/HR ? 16 HRS, ED: 1.2 ML/UNIT ? 4
     Route: 050
     Dates: start: 20191123, end: 20191125
  4. CARBIDOPA\LEVODOPA [Suspect]
     Active Substance: CARBIDOPA\LEVODOPA
     Dosage: MD: 8 ML, CD: 3.6 ML/HR ? 16 HRS, ED: 1.2 ML/UNIT ? 4
     Route: 050
     Dates: start: 20191126, end: 20191128
  5. CARBIDOPA\LEVODOPA [Suspect]
     Active Substance: CARBIDOPA\LEVODOPA
     Dosage: MD: 8 ML, CD: 2.9 ML/HR ? 16 HRS, ED: 1.2 ML/UNIT ? 5
     Route: 050
     Dates: start: 20191023, end: 20191122
  6. CARBIDOPA\LEVODOPA [Suspect]
     Active Substance: CARBIDOPA\LEVODOPA
     Dosage: MD: 8 ML, CD: 4.7 ML/HR ? 16 HRS, ED: 1.4 ML/UNIT ? 4
     Route: 050
     Dates: start: 20210804
  7. CARBIDOPA\LEVODOPA [Suspect]
     Active Substance: CARBIDOPA\LEVODOPA
     Dosage: MD: 8 ML, CD: 4.3 ML/HR ? 16 HRS, ED: 1.4 ML/UNIT ? 4
     Route: 050
     Dates: start: 20210413, end: 20210803
  8. CARBIDOPA\LEVODOPA [Suspect]
     Active Substance: CARBIDOPA\LEVODOPA
     Dosage: MD: 8 ML, CD: 4.1 ML/HR ? 16 HRS, ED: 1.4 ML/UNIT ? 4
     Route: 050
     Dates: start: 20201124, end: 20210412
  9. CARBIDOPA\LEVODOPA [Concomitant]
     Active Substance: CARBIDOPA\LEVODOPA
     Indication: Parkinson^s disease
     Dosage: 50 MILLIGRAM
     Route: 048
     Dates: end: 20200120
  10. CARBIDOPA\LEVODOPA [Concomitant]
     Active Substance: CARBIDOPA\LEVODOPA
     Indication: Parkinson^s disease
     Dosage: CARBIDOPA HYDRATE AND LEVODOPA
     Route: 048
     Dates: start: 200804
  11. CARBIDOPA\LEVODOPA [Concomitant]
     Active Substance: CARBIDOPA\LEVODOPA
     Indication: Parkinson^s disease
     Dosage: 100 MILLIGRAM, LAST ADMIN DATE 2020
     Route: 048
     Dates: start: 20200121
  12. CARBIDOPA\LEVODOPA [Concomitant]
     Active Substance: CARBIDOPA\LEVODOPA
     Indication: Parkinson^s disease
     Dosage: 50 MILLIGRAM
     Route: 048
     Dates: start: 20200317
  13. ROTIGOTINE [Concomitant]
     Active Substance: ROTIGOTINE
     Indication: Parkinson^s disease
     Dosage: 36 MILLIGRAM
     Route: 062
     Dates: end: 20191112
  14. ROTIGOTINE [Concomitant]
     Active Substance: ROTIGOTINE
     Indication: Parkinson^s disease
     Dosage: 27 MILLIGRAM
     Route: 062
     Dates: start: 20191113

REACTIONS (13)
  - Fall [Unknown]
  - Stoma site dermatitis [Recovering/Resolving]
  - Malaise [Unknown]
  - Device issue [Recovered/Resolved]
  - Illness [Recovered/Resolved]
  - Headache [Unknown]
  - Malaise [Recovered/Resolved]
  - On and off phenomenon [Not Recovered/Not Resolved]
  - Stoma site discharge [Not Recovered/Not Resolved]
  - Stoma site haemorrhage [Recovered/Resolved]
  - Drug ineffective [Unknown]
  - Stoma site erythema [Unknown]
  - Device dislocation [Recovered/Resolved]

NARRATIVE: CASE EVENT DATE: 20190101
